FAERS Safety Report 7983407 (Version 14)
Quarter: 2016Q3

REPORT INFORMATION
  Report Type: Spontaneous
  Country: US (occurrence: US)
  Receive Date: 20110609
  Receipt Date: 20160831
  Transmission Date: 20161109
  Serious: Yes (Hospitalization, Other)
  Sender: FDA-Public Use
  Company Number: US-ASTRAZENECA-2010SE48550

PATIENT
  Age: 20819 Day
  Sex: Male
  Weight: 85.3 kg

DRUGS (26)
  1. CRESTOR [Suspect]
     Active Substance: ROSUVASTATIN CALCIUM
     Indication: BLOOD CHOLESTEROL ABNORMAL
     Route: 048
  2. LASIX [Concomitant]
     Active Substance: FUROSEMIDE
     Indication: OEDEMA
  3. ASA [Concomitant]
     Active Substance: ASPIRIN
  4. PLAVIX [Concomitant]
     Active Substance: CLOPIDOGREL BISULFATE
  5. BYSTOLIC [Concomitant]
     Active Substance: NEBIVOLOL HYDROCHLORIDE
     Indication: BLOOD PRESSURE ABNORMAL
     Dates: end: 2015
  6. TYLENOL [Concomitant]
     Active Substance: ACETAMINOPHEN
     Indication: PAIN
     Dosage: 10/325 AS NEEDED
  7. CRESTOR [Suspect]
     Active Substance: ROSUVASTATIN CALCIUM
     Indication: BLOOD CHOLESTEROL ABNORMAL
     Route: 048
  8. CRESTOR [Suspect]
     Active Substance: ROSUVASTATIN CALCIUM
     Indication: BLOOD CHOLESTEROL ABNORMAL
     Route: 048
     Dates: start: 2015
  9. ZETIA [Concomitant]
     Active Substance: EZETIMIBE
  10. CRESTOR [Suspect]
     Active Substance: ROSUVASTATIN CALCIUM
     Indication: BLOOD CHOLESTEROL ABNORMAL
     Route: 048
  11. CRESTOR [Suspect]
     Active Substance: ROSUVASTATIN CALCIUM
     Indication: BLOOD CHOLESTEROL ABNORMAL
     Route: 048
  12. CRESTOR [Suspect]
     Active Substance: ROSUVASTATIN CALCIUM
     Indication: BLOOD CHOLESTEROL ABNORMAL
     Dosage: CUTTING PILLS IN HALF
     Route: 048
  13. CRESTOR [Suspect]
     Active Substance: ROSUVASTATIN CALCIUM
     Indication: BLOOD CHOLESTEROL ABNORMAL
     Route: 048
  14. AVALIDE [Concomitant]
     Active Substance: HYDROCHLOROTHIAZIDE\IRBESARTAN
     Dosage: 300/12.5 MG EVERY DAY
  15. PROTONIX [Concomitant]
     Active Substance: PANTOPRAZOLE SODIUM
     Indication: HYPERCHLORHYDRIA
     Dosage: PRN
     Route: 048
  16. CRESTOR [Suspect]
     Active Substance: ROSUVASTATIN CALCIUM
     Indication: BLOOD CHOLESTEROL ABNORMAL
     Route: 048
  17. AVAPRO [Concomitant]
     Active Substance: IRBESARTAN
     Indication: BLOOD PRESSURE ABNORMAL
     Route: 048
  18. BYSTOLIC [Concomitant]
     Active Substance: NEBIVOLOL HYDROCHLORIDE
     Indication: BLOOD PRESSURE ABNORMAL
  19. IRBESARTAN. [Concomitant]
     Active Substance: IRBESARTAN
     Indication: BLOOD PRESSURE ABNORMAL
     Route: 048
  20. VALIUM [Concomitant]
     Active Substance: DIAZEPAM
     Indication: ANXIETY
     Dosage: EITHER 2.5 MG OR 5 MG, AS NEEDED
  21. NORCO [Concomitant]
     Active Substance: ACETAMINOPHEN\HYDROCODONE BITARTRATE
     Indication: PAIN
     Dosage: 10/325 , AS NEEDED/AT SOME POINT HE WAS TAKING THIS 3-4 TIMES DAILY
  22. AMBIEN [Concomitant]
     Active Substance: ZOLPIDEM TARTRATE
     Indication: SLEEP DISORDER
     Dosage: 2.5MG AS REQUIRED
     Route: 048
     Dates: start: 2014
  23. CRESTOR [Suspect]
     Active Substance: ROSUVASTATIN CALCIUM
     Indication: BLOOD CHOLESTEROL ABNORMAL
     Route: 048
  24. CRESTOR [Suspect]
     Active Substance: ROSUVASTATIN CALCIUM
     Indication: BLOOD CHOLESTEROL ABNORMAL
     Route: 048
     Dates: start: 2006
  25. AVAPRO [Concomitant]
     Active Substance: IRBESARTAN
     Indication: BLOOD PRESSURE ABNORMAL
     Dosage: 35 MG UP TO 3 TIMES A DAY IF BLOOD PRESSURE IS UNDER 120
     Route: 048
  26. LASIX [Concomitant]
     Active Substance: FUROSEMIDE
     Indication: DIURETIC THERAPY

REACTIONS (38)
  - Myocardial infarction [Unknown]
  - Aortic rupture [Unknown]
  - Asthma [Unknown]
  - Hyperlipidaemia [Unknown]
  - Prostatic disorder [Unknown]
  - Anxiety [Unknown]
  - Neurofibromatosis [Unknown]
  - Splenic rupture [Unknown]
  - Abasia [Unknown]
  - Protein urine present [Unknown]
  - Coronary artery disease [Unknown]
  - Tooth fracture [Unknown]
  - Off label use [Recovered/Resolved]
  - Cerebrovascular disorder [Unknown]
  - Rotator cuff syndrome [Unknown]
  - Aortic stenosis [Unknown]
  - Panic attack [Unknown]
  - Blood cholesterol increased [Unknown]
  - Dysuria [Unknown]
  - Hypertension [Unknown]
  - Visual impairment [Unknown]
  - Urine analysis abnormal [Unknown]
  - Abdominal pain [Unknown]
  - Intentional product misuse [Unknown]
  - Fall [Unknown]
  - Aggression [Unknown]
  - Muscle spasms [Unknown]
  - Abdominal discomfort [Unknown]
  - Back pain [Unknown]
  - Dyslexia [Unknown]
  - Hypotension [Unknown]
  - Weight decreased [Unknown]
  - Haemorrhage [Unknown]
  - Chromaturia [Unknown]
  - Coronary artery occlusion [Unknown]
  - Carotid artery stenosis [Unknown]
  - Speech disorder [Unknown]
  - Myalgia [Unknown]

NARRATIVE: CASE EVENT DATE: 20140705
